FAERS Safety Report 21490430 (Version 1)
Quarter: 2022Q4

REPORT INFORMATION
  Report Type: Spontaneous
  Country: US (occurrence: None)
  Receive Date: 20221021
  Receipt Date: 20221021
  Transmission Date: 20230113
  Serious: No
  Sender: FDA-Public Use
  Company Number: US-SUPERNUS Pharmaceuticals, Inc.-SUP202208-002458

PATIENT
  Sex: Female

DRUGS (3)
  1. QELBREE [Suspect]
     Active Substance: VILOXAZINE HYDROCHLORIDE
     Indication: Anxiety
  2. QELBREE [Suspect]
     Active Substance: VILOXAZINE HYDROCHLORIDE
     Indication: Disturbance in attention
  3. QELBREE [Suspect]
     Active Substance: VILOXAZINE HYDROCHLORIDE

REACTIONS (2)
  - Suicidal ideation [Recovering/Resolving]
  - Product use in unapproved indication [Unknown]
